FAERS Safety Report 6532144-2 (Version None)
Quarter: 2010Q1

REPORT INFORMATION
  Report Type: 
  Country: None (occurrence: None)
  Receive Date: 20100108
  Receipt Date: 20100105
  Transmission Date: 20100710
  Serious: Yes (Other)
  Sender: FDA-Public Use
  Company Number: CHPA2010US00565

PATIENT
  Age: 31 Year
  Sex: Female
  Weight: 58.957 kg

DRUGS (1)
  1. THERAFLU DAYTIME SEVERE COLD + COUGH [Suspect]
     Indication: NASOPHARYNGITIS
     Dosage: 3 TO 4 PACKETS, IN 24 HOURS
     Route: 048
     Dates: start: 20100104

REACTIONS (2)
  - HYPOTHYROIDISM [None]
  - THYROID CANCER [None]
